FAERS Safety Report 13079826 (Version 1)
Quarter: 2017Q1

REPORT INFORMATION
  Report Type: Report from Study
  Country: NL (occurrence: NL)
  Receive Date: 20170103
  Receipt Date: 20170103
  Transmission Date: 20170428
  Serious: Yes (Hospitalization)
  Sender: FDA-Public Use
  Company Number: NL-TEVA-725194ROM

PATIENT
  Age: 63 Year
  Sex: Female

DRUGS (6)
  1. METOPROLOL MGA [Concomitant]
     Indication: HYPERTENSION
     Dosage: 50 MILLIGRAM DAILY;
     Route: 048
     Dates: start: 200204
  2. HYDROCHLOROTHIAZIDE. [Concomitant]
     Active Substance: HYDROCHLOROTHIAZIDE
     Indication: HYPERTENSION
     Dosage: 12.5 MILLIGRAM DAILY;
     Route: 048
     Dates: start: 200204
  3. SIMVASTATINE [Concomitant]
     Active Substance: SIMVASTATIN
     Indication: HYPERCHOLESTEROLAEMIA
     Dosage: 40 MILLIGRAM DAILY;
     Route: 048
     Dates: start: 200612
  4. CYCLOPHOSPHAMIDE. [Suspect]
     Active Substance: CYCLOPHOSPHAMIDE
     Indication: CHEMOTHERAPY
     Dosage: LAST ADMINSITRATION DATE BEFORE AE OCCURENCE 25-OCT-2016
     Route: 042
     Dates: start: 20161011, end: 20161214
  5. DOXORUBICIN [Suspect]
     Active Substance: DOXORUBICIN
     Indication: CHEMOTHERAPY
     Dosage: LAST ADMINSITRATION DATE BEFORE AE OCCURENCE 25-OCT-2016
     Route: 042
     Dates: start: 20161011, end: 20161214
  6. LONQUEX 6 MG, OPLOSSING VOOR INJECTIE [Suspect]
     Active Substance: LIPEGFILGRASTIM
     Indication: PROPHYLACTIC CHEMOTHERAPY
     Dosage: LAST ADMINSITRATION DATE BEFORE AE OCCURENCE 26-OCT-2016
     Route: 058
     Dates: start: 20161012, end: 20161201

REACTIONS (1)
  - Febrile neutropenia [Recovered/Resolved]

NARRATIVE: CASE EVENT DATE: 20161104
